FAERS Safety Report 13977165 (Version 2)
Quarter: 2017Q3

REPORT INFORMATION
  Report Type: Spontaneous
  Country: US (occurrence: US)
  Receive Date: 20170915
  Receipt Date: 20170915
  Transmission Date: 20171128
  Serious: Yes (Death, Hospitalization)
  Sender: FDA-Public Use
  Company Number: US-ROCHE-681907

PATIENT
  Age: 65 Year
  Sex: Male
  Weight: 76.6 kg

DRUGS (6)
  1. NAVELBINE [Concomitant]
     Active Substance: VINORELBINE TARTRATE
     Indication: BREAST CANCER METASTATIC
     Route: 065
     Dates: start: 200611, end: 200706
  2. HERCEPTIN [Suspect]
     Active Substance: TRASTUZUMAB
     Indication: BREAST CANCER METASTATIC
     Dosage: TAKEN FROM 2005-2006 FOR ONE YEAR
     Route: 042
     Dates: start: 2005, end: 2006
  3. HERCEPTIN [Suspect]
     Active Substance: TRASTUZUMAB
     Dosage: FOR METASTATIC BREAST CANCER. GIVEN WITH NAVELBINE
     Route: 042
     Dates: start: 200611, end: 200706
  4. HERCEPTIN [Suspect]
     Active Substance: TRASTUZUMAB
     Dosage: FREQUENCY:ONE DOSE
     Route: 042
  5. ABRAXANE [Suspect]
     Active Substance: PACLITAXEL
     Indication: BREAST CANCER METASTATIC
     Route: 042
  6. TRASTUZUMAB EMTANSINE [Suspect]
     Active Substance: ADO-TRASTUZUMAB EMTANSINE
     Indication: PRODUCT USED FOR UNKNOWN INDICATION
     Dosage: WAS GIVEN IN A CLINICAL TRIAL.
     Route: 065

REACTIONS (3)
  - Pulmonary oedema [Fatal]
  - Interstitial lung disease [Unknown]
  - Dyspnoea [Unknown]

NARRATIVE: CASE EVENT DATE: 20100121
